FAERS Safety Report 10387326 (Version 2)
Quarter: 2014Q3

REPORT INFORMATION
  Report Type: Spontaneous
  Country: US (occurrence: US)
  Receive Date: 20140815
  Receipt Date: 20140829
  Transmission Date: 20150326
  Serious: Yes (Other)
  Sender: FDA-Public Use
  Company Number: US-PFIZER INC-2014225768

PATIENT
  Age: 36 Year
  Sex: Female

DRUGS (4)
  1. LETAIRIS [Suspect]
     Active Substance: AMBRISENTAN
     Indication: EISENMENGER^S SYNDROME
  2. LETAIRIS [Suspect]
     Active Substance: AMBRISENTAN
     Indication: PULMONARY HYPERTENSION
     Dosage: 10 MG, 1X/DAY
     Dates: start: 20130817
  3. REVATIO [Suspect]
     Active Substance: SILDENAFIL CITRATE
     Dosage: 1 DF, 3X/DAY
  4. REVATIO [Suspect]
     Active Substance: SILDENAFIL CITRATE
     Dosage: 2 DF, 3X/DAY

REACTIONS (5)
  - Tremor [Unknown]
  - Cardiac failure congestive [Unknown]
  - Pulmonary oedema [Unknown]
  - Hypotension [Unknown]
  - Blood pressure decreased [Unknown]
